FAERS Safety Report 10763133 (Version 1)
Quarter: 2015Q1

REPORT INFORMATION
  Report Type: Spontaneous
  Country: US (occurrence: US)
  Receive Date: 20150204
  Receipt Date: 20150204
  Transmission Date: 20150721
  Serious: No
  Sender: FDA-Public Use
  Company Number: US-MYLANLABS-2014M1010037

PATIENT
  Sex: Female

DRUGS (3)
  1. PREDNISOLONE. [Suspect]
     Active Substance: PREDNISOLONE
     Dosage: UNK
  2. SABRIL [Suspect]
     Active Substance: VIGABATRIN
     Dosage: UNK
  3. ACTH [Suspect]
     Active Substance: CORTICOTROPIN
     Dosage: UNK

REACTIONS (4)
  - Somnolence [Not Recovered/Not Resolved]
  - Trance [Not Recovered/Not Resolved]
  - Irritability [Not Recovered/Not Resolved]
  - Thirst [Not Recovered/Not Resolved]
